FAERS Safety Report 9056901 (Version 2)
Quarter: 2013Q1

REPORT INFORMATION
  Report Type: Report from Study
  Country: US (occurrence: US)
  Receive Date: 20130201
  Receipt Date: 20130212
  Transmission Date: 20140127
  Serious: Yes (Hospitalization, Other)
  Sender: FDA-Public Use
  Company Number: US-BRISTOL-MYERS SQUIBB COMPANY-16784118

PATIENT
  Age: 52 Year
  Sex: Male
  Weight: 132 kg

DRUGS (1)
  1. IPILIMUMAB [Suspect]
     Indication: MALIGNANT MELANOMA
     Dosage: RECENT DOSE 5JUL12; RECEIVED 4 DOSES IN INDUCTION PHASE?1319 MG
     Route: 042
     Dates: start: 20120503, end: 20120719

REACTIONS (2)
  - Pneumonitis [Not Recovered/Not Resolved]
  - Hypophysitis [Not Recovered/Not Resolved]
